FAERS Safety Report 5809599-1 (Version None)
Quarter: 2008Q3

REPORT INFORMATION
  Report Type: 
  Country: None (occurrence: None)
  Receive Date: 20080709
  Receipt Date: 20080703
  Transmission Date: 20090109
  Serious: Yes (Life-Threatening)
  Sender: FDA-Public Use
  Company Number: 2008SP013318

PATIENT
  Age: 28 Year
  Sex: Male

DRUGS (1)
  1. BETAMETHASONE DIPROPIONATE [Suspect]
     Indication: ECZEMA
     Dosage: 1 DF; IM
     Route: 030
     Dates: start: 20010314, end: 20010314

REACTIONS (3)
  - ANAPHYLACTIC SHOCK [None]
  - CONVULSION [None]
  - HYPOAESTHESIA [None]
